FAERS Safety Report 22252137 (Version 1)
Quarter: 2023Q2

REPORT INFORMATION
  Report Type: Spontaneous
  Country: FR (occurrence: FR)
  Receive Date: 20230425
  Receipt Date: 20230425
  Transmission Date: 20230722
  Serious: Yes (Other)
  Sender: FDA-Public Use
  Company Number: None

PATIENT
  Age: 90 Year
  Sex: Female

DRUGS (6)
  1. ELIQUIS [Suspect]
     Active Substance: APIXABAN
     Indication: Deep vein thrombosis
     Dosage: FREQUENCY TIME :1 DAY
     Route: 048
     Dates: start: 20230216, end: 20230217
  2. ELIQUIS [Suspect]
     Active Substance: APIXABAN
     Dosage: FREQUENCY TIME :1 DAY
     Route: 048
     Dates: start: 20230124, end: 20230215
  3. ELIQUIS [Suspect]
     Active Substance: APIXABAN
     Dosage: FREQUENCY TIME :1 DAY
     Route: 048
     Dates: start: 20230220, end: 20230221
  4. AMOXICILLIN [Concomitant]
     Active Substance: AMOXICILLIN
     Indication: Anaemia vitamin B12 deficiency
     Route: 048
     Dates: start: 2022
  5. AMLODIPINE [Concomitant]
     Active Substance: AMLODIPINE BESYLATE
     Indication: Hypertension
     Route: 048
     Dates: start: 2022
  6. FOLIC ACID [Concomitant]
     Active Substance: FOLIC ACID
     Indication: Anaemia vitamin B12 deficiency
     Route: 048
     Dates: start: 2022

REACTIONS (2)
  - Confusional state [Recovered/Resolved]
  - Hallucination [Recovered/Resolved]

NARRATIVE: CASE EVENT DATE: 20230214
